FAERS Safety Report 19673578 (Version 1)
Quarter: 2021Q3

REPORT INFORMATION
  Report Type: Spontaneous
  Country: US (occurrence: US)
  Receive Date: 20210806
  Receipt Date: 20210806
  Transmission Date: 20211014
  Serious: No
  Sender: FDA-Public Use
  Company Number: None

PATIENT
  Age: 43 Year
  Sex: Female
  Weight: 67.5 kg

DRUGS (3)
  1. LEVOFLOXACIN. [Suspect]
     Active Substance: LEVOFLOXACIN
     Indication: URINARY TRACT INFECTION
     Dosage: QUANTITY:5 CAPSULE(S);?
     Route: 048
     Dates: start: 20200825, end: 20200829
  2. VITAMINS [Concomitant]
     Active Substance: VITAMINS
  3. AMYTRIPTALINE [Concomitant]

REACTIONS (14)
  - Oral discomfort [None]
  - Chest pain [None]
  - Neuropathy peripheral [None]
  - Visual impairment [None]
  - Asthenia [None]
  - Collagen disorder [None]
  - Joint noise [None]
  - Eye pain [None]
  - Eye movement disorder [None]
  - General physical health deterioration [None]
  - Burning sensation [None]
  - Tremor [None]
  - Dyskinesia [None]
  - Tendon pain [None]

NARRATIVE: CASE EVENT DATE: 20200824
